FAERS Safety Report 6494653-4 (Version None)
Quarter: 2009Q4

REPORT INFORMATION
  Report Type: 
  Country: None (occurrence: None)
  Receive Date: 20091214
  Receipt Date: 20090317
  Transmission Date: 20100525
  Serious: Yes (Hospitalization)
  Sender: FDA-Public Use
  Company Number: US-BRISTOL-MYERS SQUIBB COMPANY-14541288

PATIENT
  Age: 1 Decade
  Sex: Male

DRUGS (3)
  1. ABILIFY [Suspect]
     Indication: ABNORMAL BEHAVIOUR
     Route: 048
     Dates: start: 20081201
  2. SEROQUEL [Suspect]
     Indication: ABNORMAL BEHAVIOUR
  3. CLONIDINE [Suspect]
     Indication: ABNORMAL BEHAVIOUR

REACTIONS (1)
  - MUSCULAR WEAKNESS [None]
